FAERS Safety Report 12280685 (Version 2)
Quarter: 2016Q2

REPORT INFORMATION
  Report Type: Spontaneous
  Country: AT (occurrence: AT)
  Receive Date: 20160419
  Receipt Date: 20160427
  Transmission Date: 20160815
  Serious: Yes (Other)
  Sender: FDA-Public Use
  Company Number: AT-AMGEN-AUSSP2016046257

PATIENT
  Age: 64 Year
  Sex: Female

DRUGS (9)
  1. EXEMESTAN [Concomitant]
     Active Substance: EXEMESTANE
     Indication: BREAST CANCER
  2. TAMOXIFEN [Concomitant]
     Active Substance: TAMOXIFEN
     Indication: METASTASES TO BONE
  3. XGEVA [Suspect]
     Active Substance: DENOSUMAB
     Indication: BREAST CANCER
     Dosage: 120 MG, Q4WK
     Route: 065
  4. EXEMESTAN [Concomitant]
     Active Substance: EXEMESTANE
     Indication: METASTASES TO BONE
  5. FULVESTRANT [Concomitant]
     Active Substance: FULVESTRANT
     Indication: METASTASES TO BONE
  6. EVEROLIMUS [Concomitant]
     Active Substance: EVEROLIMUS
     Indication: METASTASES TO BONE
  7. TAMOXIFEN [Concomitant]
     Active Substance: TAMOXIFEN
     Indication: BREAST CANCER
     Dosage: UNK
  8. FULVESTRANT [Concomitant]
     Active Substance: FULVESTRANT
     Indication: BREAST CANCER
     Dosage: 500 MG, UNK
  9. EVEROLIMUS [Concomitant]
     Active Substance: EVEROLIMUS
     Indication: BREAST CANCER
     Dosage: 10 MG, UNK

REACTIONS (2)
  - Jaw fracture [Unknown]
  - Osteonecrosis of jaw [Unknown]
